FAERS Safety Report 12526525 (Version 4)
Quarter: 2017Q4

REPORT INFORMATION
  Report Type: Report from Study
  Country: AU (occurrence: AU)
  Receive Date: 20160705
  Receipt Date: 20171126
  Transmission Date: 20180320
  Serious: Yes (Death, Hospitalization, Other)
  Sender: FDA-Public Use
  Company Number: PHHY2016AU076632

PATIENT
  Sex: Female

DRUGS (1)
  1. SANDOSTATIN LAR DEPOT [Suspect]
     Active Substance: OCTREOTIDE ACETATE
     Indication: ACROMEGALY
     Dosage: 30 MG, UNK
     Route: 030

REACTIONS (7)
  - Pneumonia [Fatal]
  - Neoplasm malignant [Not Recovered/Not Resolved]
  - Malaise [Unknown]
  - Sepsis [Fatal]
  - Influenza like illness [Not Recovered/Not Resolved]
  - General physical health deterioration [Fatal]
  - Chest pain [Not Recovered/Not Resolved]
